FAERS Safety Report 24198664 (Version 3)
Quarter: 2024Q4

REPORT INFORMATION
  Report Type: Spontaneous
  Country: CA (occurrence: CA)
  Receive Date: 20240812
  Receipt Date: 20241014
  Transmission Date: 20250114
  Serious: Yes (Hospitalization, Other)
  Sender: NOVO NORDISK
  Company Number: CA-NOVOPROD-1265352

PATIENT
  Age: 25 Month
  Sex: Female

DRUGS (3)
  1. NORDITROPIN [Suspect]
     Active Substance: SOMATROPIN
     Dosage: DOSE 0.3MG NORMALLY WITH THE 5MG
  2. NORDITROPIN [Suspect]
     Active Substance: SOMATROPIN
     Dosage: UNK(WITH 10MG/1.5ML)
     Dates: start: 20240731
  3. NORDITROPIN [Suspect]
     Active Substance: SOMATROPIN
     Indication: Prader-Willi syndrome
     Dosage: 5MG/1.5ML PEN FOR 10 MONTHS

REACTIONS (10)
  - Pneumonia [Recovered/Resolved]
  - Respiratory distress [Recovered/Resolved]
  - Heart rate increased [Unknown]
  - Pyrexia [Unknown]
  - Constipation [Unknown]
  - Flatulence [Unknown]
  - Fatigue [Unknown]
  - Insomnia [Unknown]
  - Pain [Unknown]
  - Crying [Unknown]

NARRATIVE: CASE EVENT DATE: 20240731
